FAERS Safety Report 7478771-X (Version None)
Quarter: 2011Q2

REPORT INFORMATION
  Report Type: 
  Country: None (occurrence: None)
  Receive Date: 20110513
  Receipt Date: 20110504
  Transmission Date: 20111010
  Serious: Yes (Other)
  Sender: FDA-Public Use
  Company Number: LB-SANOFI-AVENTIS-2011SA028580

PATIENT
  Age: 58 Year
  Sex: Male
  Weight: 97 kg

DRUGS (7)
  1. ELOXATIN [Suspect]
     Route: 042
     Dates: start: 20090227, end: 20090227
  2. AVASTIN [Suspect]
     Route: 042
  3. ELOXATIN [Suspect]
     Route: 042
  4. AVASTIN [Suspect]
     Route: 042
     Dates: start: 20090227, end: 20090227
  5. MICARDIS [Concomitant]
  6. RABEPRAZOLE SODIUM [Concomitant]
  7. CAPECITABINE [Suspect]
     Route: 048
     Dates: start: 20090227

REACTIONS (1)
  - PROSTATE CANCER [None]
